FAERS Safety Report 9307114 (Version 1)
Quarter: 2013Q2

REPORT INFORMATION
  Report Type: Report from Study
  Country: BR (occurrence: BR)
  Receive Date: 20130524
  Receipt Date: 20130524
  Transmission Date: 20140414
  Serious: Yes (Other)
  Sender: FDA-Public Use
  Company Number: BR-ROCHE-1228353

PATIENT
  Age: 54 Year
  Sex: Female
  Weight: 63 kg

DRUGS (5)
  1. PEGASYS [Suspect]
     Indication: HEPATITIS C
     Route: 065
     Dates: start: 20130422
  2. PEGASYS [Suspect]
     Route: 065
     Dates: start: 20070522
  3. RIBAVIRIN [Suspect]
     Indication: HEPATITIS C
     Route: 065
     Dates: start: 20130422
  4. RIBAVIRIN [Suspect]
     Route: 065
     Dates: start: 20070522
  5. TELAPREVIR [Suspect]
     Indication: HEPATITIS C
     Dosage: DAILY
     Route: 065
     Dates: start: 20130422

REACTIONS (1)
  - Hepatitis C [Unknown]
